FAERS Safety Report 6565657-8 (Version None)
Quarter: 2010Q1

REPORT INFORMATION
  Report Type: 
  Country: None (occurrence: None)
  Receive Date: 20100201
  Receipt Date: 20100119
  Transmission Date: 20100710
  Serious: Yes (Hospitalization)
  Sender: FDA-Public Use
  Company Number: FR-GENENTECH-297256

PATIENT
  Sex: Male

DRUGS (6)
  1. MABTHERA [Suspect]
     Indication: B-CELL LYMPHOMA
     Dosage: 712.5 MG, UNK
     Route: 042
     Dates: start: 20090610, end: 20090610
  2. MABTHERA [Suspect]
     Dosage: UNK
     Route: 042
     Dates: start: 20090701
  3. ATARAX [Concomitant]
     Indication: PREMEDICATION
     Dosage: UNK
  4. HYDROCORTISONE HEMISUCCINATE [Concomitant]
     Indication: PREMEDICATION
     Dosage: UNK
  5. PERFALGAN [Concomitant]
     Indication: PREMEDICATION
     Dosage: UNK
  6. POLARAMINE [Concomitant]
     Indication: PREMEDICATION
     Dosage: UNK

REACTIONS (5)
  - CHEST DISCOMFORT [None]
  - CHILLS [None]
  - ELECTROCARDIOGRAM ABNORMAL [None]
  - HYPOTENSION [None]
  - MALAISE [None]
